FAERS Safety Report 23895990 (Version 1)
Quarter: 2024Q2

REPORT INFORMATION
  Report Type: Spontaneous
  Country: US (occurrence: None)
  Receive Date: 20240523
  Receipt Date: 20240523
  Transmission Date: 20240715
  Serious: No
  Sender: FDA-Public Use
  Company Number: None

PATIENT
  Age: 25 Year
  Weight: 59.1 kg

DRUGS (3)
  1. OLUMIANT [Suspect]
     Active Substance: BARICITINIB
     Indication: Alopecia
     Dates: start: 2024, end: 20240405
  2. METRONIDAZOLE [Concomitant]
     Active Substance: METRONIDAZOLE
  3. CLOBETASOL [Concomitant]
     Active Substance: CLOBETASOL

REACTIONS (2)
  - Abdominal pain upper [None]
  - Heavy menstrual bleeding [None]

NARRATIVE: CASE EVENT DATE: 20240404
